FAERS Safety Report 6711540-4 (Version None)
Quarter: 2010Q2

REPORT INFORMATION
  Report Type: 
  Country: None (occurrence: None)
  Receive Date: 20100505
  Receipt Date: 20100422
  Transmission Date: 20101027
  Serious: Yes (Hospitalization, Other)
  Sender: FDA-Public Use
  Company Number: PHHY2009JP54664

PATIENT
  Sex: Female
  Weight: 50 kg

DRUGS (6)
  1. ZOMETA [Suspect]
     Indication: METASTASES TO BONE
     Dosage: 4 MG PER ADMINISTRATION
     Route: 042
     Dates: start: 20060601, end: 20080701
  2. ZOMETA [Suspect]
     Dosage: UNK
     Dates: start: 20091228
  3. AREDIA [Suspect]
     Indication: METASTASES TO BONE
     Dosage: UNK
     Route: 042
     Dates: start: 20080701
  4. CYCLOPHOSPHAMIDE [Concomitant]
     Indication: METASTASES TO LIVER
  5. ADRIACIN [Concomitant]
     Indication: METASTASES TO LIVER
     Dosage: UNK
  6. FLUOROURACIL [Concomitant]
     Indication: METASTASES TO LIVER
     Dosage: UNK

REACTIONS (6)
  - BONE DISORDER [None]
  - IMPAIRED HEALING [None]
  - JAW OPERATION [None]
  - OSTEONECROSIS OF JAW [None]
  - PAIN [None]
  - TOOTH EXTRACTION [None]
